FAERS Safety Report 9539226 (Version 1)
Quarter: 2013Q2

REPORT INFORMATION
  Report Type: Spontaneous
  Country: US (occurrence: None)
  Receive Date: 20130507
  Receipt Date: 20130507
  Transmission Date: 20140414
  Serious: No
  Sender: FDA-Public Use
  Company Number: PHEH2013US003463

PATIENT
  Age: 64 Year
  Sex: Female

DRUGS (6)
  1. AFINITOR [Suspect]
     Route: 048
  2. EXEMESTANE (EXEMESTANE) [Concomitant]
  3. COUMADINE (WARFARIN SODIUM) [Concomitant]
  4. VITAMIN B (VITAMIN B COMPLEX) [Concomitant]
  5. CALCIUM + D (CALCIUM, COLECALCIFEROL) [Concomitant]
  6. VITAMIN B6 (PYRIDOXINE HYDROCHLORIDE) [Concomitant]

REACTIONS (1)
  - Rash [None]
